FAERS Safety Report 19174269 (Version 1)
Quarter: 2021Q2

REPORT INFORMATION
  Report Type: Spontaneous
  Country: US (occurrence: US)
  Receive Date: 20210423
  Receipt Date: 20210423
  Transmission Date: 20210717
  Serious: No
  Sender: FDA-Public Use
  Company Number: US-MYLANLABS-2021M1023048

PATIENT
  Age: 75 Year
  Sex: Male
  Weight: 118 kg

DRUGS (2)
  1. CLONIDINE TRANSDERMAL SYSTEM [Suspect]
     Active Substance: CLONIDINE
     Indication: HYPERTENSION
     Dosage: 0.2 MG IN 1 D PATCH ONCE EVERY 7 DAYS
     Route: 062
     Dates: start: 20210408, end: 202104
  2. CLONIDINE HYDROCHLORIDE TABLETS, USP [Suspect]
     Active Substance: CLONIDINE HYDROCHLORIDE
     Indication: HYPERTENSION
     Dosage: ON TABLET AT 9:00 AM DAILY
     Route: 048

REACTIONS (2)
  - Blood pressure fluctuation [Recovered/Resolved]
  - Drug ineffective [Not Recovered/Not Resolved]

NARRATIVE: CASE EVENT DATE: 20210408
